FAERS Safety Report 7544219-X (Version None)
Quarter: 2011Q2

REPORT INFORMATION
  Report Type: 
  Country: None (occurrence: None)
  Receive Date: 20110613
  Receipt Date: 20060706
  Transmission Date: 20111010
  Serious: Yes (Hospitalization)
  Sender: FDA-Public Use
  Company Number: PHHO2006DE07376

PATIENT
  Sex: Male
  Weight: 87 kg

DRUGS (3)
  1. ZOLEDRONIC ACID [Suspect]
     Indication: METASTASES TO BONE
     Dosage: 4MG Q3MO FOR 2 YEARS
     Route: 042
     Dates: start: 20050315
  2. CALCIUM CARBONATE [Suspect]
  3. VITAMIN D [Suspect]

REACTIONS (2)
  - HAEMATURIA [None]
  - BLADDER OBSTRUCTION [None]
